FAERS Safety Report 4286705-4 (Version None)
Quarter: 2004Q1

REPORT INFORMATION
  Report Type: 
  Country: None (occurrence: None)
  Receive Date: 20040204
  Receipt Date: 20040130
  Transmission Date: 20041129
  Serious: Yes (Hospitalization)
  Sender: FDA-Public Use
  Company Number: 200410043BYL

PATIENT
  Sex: Male

DRUGS (1)
  1. CIPROXAN IV (CIPROFLOXACIN) [Suspect]
     Indication: PNEUMONIA
     Dosage: 300 MG, BID, INTRAVENOUS DRIP
     Route: 041

REACTIONS (4)
  - BLOOD CREATINE PHOSPHOKINASE INCREASED [None]
  - BLOOD LACTATE DEHYDROGENASE INCREASED [None]
  - HAEMATURIA [None]
  - RHABDOMYOLYSIS [None]
